FAERS Safety Report 8538882-4 (Version None)
Quarter: 2012Q3

REPORT INFORMATION
  Report Type: 
  Country: None (occurrence: None)
  Receive Date: 20120716
  Receipt Date: 20120705
  Transmission Date: 20120928
  Serious: Yes (Disabling, Other)
  Sender: FDA-Public Use
  Company Number: DSA_55753_2012

PATIENT
  Sex: Female

DRUGS (2)
  1. WELLBUTRIN XL [Suspect]
     Indication: ANXIETY
     Dosage: 150 MG, BID, ORAL (150 MG, QD, ORAL)
     Route: 048
     Dates: end: 20120401
  2. WELLBUTRIN XL [Suspect]
     Indication: ANXIETY
     Dosage: 150 MG, BID, ORAL (150 MG, QD, ORAL)
     Route: 048
     Dates: start: 20120317, end: 20120317

REACTIONS (7)
  - PANIC ATTACK [None]
  - VOMITING [None]
  - IMPAIRED WORK ABILITY [None]
  - DIARRHOEA [None]
  - DRUG DOSE OMISSION [None]
  - AGGRESSION [None]
  - IRRITABILITY [None]
